FAERS Safety Report 6287865-6 (Version None)
Quarter: 2009Q3

REPORT INFORMATION
  Report Type: 
  Country: None (occurrence: None)
  Receive Date: 20090729
  Receipt Date: 20090717
  Transmission Date: 20100115
  Serious: Yes (Hospitalization)
  Sender: FDA-Public Use
  Company Number: GB-ELI_LILLY_AND_COMPANY-GB200906003178

PATIENT
  Sex: Female

DRUGS (3)
  1. BYETTA [Suspect]
     Dosage: 10 UG, UNKNOWN
     Route: 058
     Dates: end: 20090623
  2. GLICLAZIDE [Concomitant]
     Dosage: 80 MG, 2/D
     Route: 048
  3. METFORMIN [Concomitant]
     Dosage: 50 MG, 2/D
     Route: 048

REACTIONS (3)
  - BLOOD GLUCOSE INCREASED [None]
  - DISEASE RECURRENCE [None]
  - LYMPHOMA [None]
